FAERS Safety Report 9107465 (Version 1)
Quarter: 2013Q1

REPORT INFORMATION
  Report Type: Spontaneous
  Country: US (occurrence: US)
  Receive Date: 20130221
  Receipt Date: 20130221
  Transmission Date: 20140127
  Serious: Yes (Other)
  Sender: FDA-Public Use
  Company Number: US-PFIZER INC-2013014725

PATIENT
  Age: 53 Year
  Sex: Female
  Weight: 65.76 kg

DRUGS (2)
  1. LYRICA [Suspect]
     Indication: LIMB DISCOMFORT
     Dosage: 150 MG, 2X/DAY
     Dates: start: 2008
  2. LYRICA [Suspect]
     Indication: ARTHROPATHY

REACTIONS (1)
  - Upper limb fracture [Recovering/Resolving]
